FAERS Safety Report 23514107 (Version 10)
Quarter: 2024Q4

REPORT INFORMATION
  Report Type: Report from Study
  Country: FR (occurrence: FR)
  Receive Date: 20240212
  Receipt Date: 20241030
  Transmission Date: 20250115
  Serious: Yes (Hospitalization, Other)
  Sender: NOVARTIS
  Company Number: FR-002147023-NVSC2024FR029311

PATIENT
  Sex: Female
  Weight: 66.4 kg

DRUGS (3)
  1. KISQALI [Suspect]
     Active Substance: RIBOCICLIB
     Indication: Hormone receptor positive HER2 negative breast cancer
     Dosage: 600 MG, QD
     Route: 048
     Dates: start: 20240119, end: 20240127
  2. KISQALI [Suspect]
     Active Substance: RIBOCICLIB
     Dosage: 600 MG, QD
     Route: 048
     Dates: start: 20240228, end: 20240328
  3. PACLITAXEL [Concomitant]
     Active Substance: PACLITAXEL
     Indication: Hormone receptor positive HER2 negative breast cancer
     Dosage: UNK
     Route: 065
     Dates: start: 20240329

REACTIONS (13)
  - Acute kidney injury [Recovered/Resolved]
  - General physical health deterioration [Not Recovered/Not Resolved]
  - Nausea [Recovered/Resolved]
  - Vomiting [Recovered/Resolved]
  - Vomiting [Recovered/Resolved]
  - Decubitus ulcer [Recovering/Resolving]
  - Anaemia [Recovering/Resolving]
  - Pain [Recovering/Resolving]
  - Oedema peripheral [Recovering/Resolving]
  - Hypercalcaemia [Recovered/Resolved]
  - Hypercalcaemia [Recovered/Resolved]
  - Cystitis [Recovering/Resolving]
  - Hypertension [Not Recovered/Not Resolved]

NARRATIVE: CASE EVENT DATE: 20240101
